FAERS Safety Report 11460895 (Version 1)
Quarter: 2015Q3

REPORT INFORMATION
  Report Type: Spontaneous
  Country: US (occurrence: US)
  Receive Date: 20150904
  Receipt Date: 20150904
  Transmission Date: 20151125
  Serious: Yes (Other)
  Sender: FDA-Public Use
  Company Number: US-TAKEDA-2014TUS009035

PATIENT

DRUGS (12)
  1. METFORMIN [Concomitant]
     Active Substance: METFORMIN HYDROCHLORIDE
     Dosage: 1000 MG, UNK
     Dates: start: 200908, end: 201004
  2. JANUVIA [Concomitant]
     Active Substance: SITAGLIPTIN PHOSPHATE
     Dosage: 50 UNK, UNK
     Dates: start: 200812
  3. HUMALOG [Concomitant]
     Active Substance: INSULIN LISPRO
     Dosage: 100/ML
     Dates: start: 201401, end: 201402
  4. ACTOS [Suspect]
     Active Substance: PIOGLITAZONE HYDROCHLORIDE
     Dosage: 15 MG, UNK
     Route: 048
     Dates: start: 20060505, end: 20070714
  5. HUMALOG [Concomitant]
     Active Substance: INSULIN LISPRO
     Dosage: 100/ML
     Dates: start: 201408, end: 201409
  6. LANTUS [Concomitant]
     Active Substance: INSULIN GLARGINE
     Dosage: 3 ML, UNK
     Dates: start: 200909
  7. DIABETA                            /00145301/ [Concomitant]
     Dosage: 2.5 MG, UNK
     Dates: start: 200209, end: 200707
  8. JANUVIA [Concomitant]
     Active Substance: SITAGLIPTIN PHOSPHATE
     Dosage: 50 MG, UNK
     Dates: start: 200806, end: 200810
  9. ACTOS [Suspect]
     Active Substance: PIOGLITAZONE HYDROCHLORIDE
     Indication: TYPE 2 DIABETES MELLITUS
     Dosage: 15 MG, UNK
     Route: 048
     Dates: start: 20031110, end: 200312
  10. ACTOS [Suspect]
     Active Substance: PIOGLITAZONE HYDROCHLORIDE
     Dosage: 30 MG, UNK
     Route: 048
     Dates: start: 20081003, end: 200812
  11. DIABETA                            /00145301/ [Concomitant]
     Dosage: 5 MG, UNK
     Dates: start: 200707, end: 200907
  12. ACTOS [Suspect]
     Active Substance: PIOGLITAZONE HYDROCHLORIDE
     Dosage: 30 MG, UNK
     Route: 048
     Dates: start: 20070714, end: 200806

REACTIONS (1)
  - Bladder cancer [Unknown]

NARRATIVE: CASE EVENT DATE: 20131028
